FAERS Safety Report 8871657 (Version 1)
Quarter: 2012Q4

REPORT INFORMATION
  Report Type: 
  Country: FR (occurrence: FR)
  Receive Date: 20121030
  Receipt Date: 20121030
  Transmission Date: 20130627
  Serious: Yes (Other)
  Sender: FDA-Public Use
  Company Number: FR-ABBOTT-12P-056-0989432-00

PATIENT
  Age: 20 None
  Sex: Female

DRUGS (4)
  1. KALETRA TABLETS 200/50 [Suspect]
     Indication: EXPOSURE TO COMMUNICABLE DISEASE
     Route: 048
     Dates: start: 20120922
  2. KALETRA TABLETS 200/50 [Suspect]
     Indication: PROPHYLAXIS AGAINST HIV INFECTION
  3. TRUVADA [Concomitant]
     Indication: PROPHYLAXIS AGAINST HIV INFECTION
     Dosage: 200/245mg
     Dates: start: 20120922
  4. TRUVADA [Concomitant]
     Indication: EXPOSURE TO COMMUNICABLE DISEASE

REACTIONS (3)
  - Post-traumatic stress disorder [Unknown]
  - Convulsion [Recovered/Resolved]
  - Tongue injury [Unknown]
